FAERS Safety Report 8837561 (Version 1)
Quarter: 2012Q4

REPORT INFORMATION
  Report Type: Report from Study
  Country: CA (occurrence: CA)
  Receive Date: 20121012
  Receipt Date: 20121012
  Transmission Date: 20130627
  Serious: Yes (Hospitalization)
  Sender: FDA-Public Use
  Company Number: CA-JNJFOC-20121001979

PATIENT
  Age: 67 Year
  Sex: Male
  Weight: 81.5 kg

DRUGS (12)
  1. REMICADE [Suspect]
     Indication: COLITIS ULCERATIVE
     Dosage: 8th dose
     Route: 042
     Dates: start: 20121002
  2. REMICADE [Suspect]
     Indication: COLITIS ULCERATIVE
     Route: 042
     Dates: start: 201111, end: 20120809
  3. ACETAMINOPHEN [Concomitant]
     Indication: PREMEDICATION
     Route: 065
  4. HYDROCORTISONE [Concomitant]
     Indication: PREMEDICATION
     Route: 042
  5. AMIODARONE [Concomitant]
     Route: 065
  6. AZATHIOPRINE [Concomitant]
     Route: 065
  7. APO PREDNISONE [Concomitant]
     Indication: PREMEDICATION
     Dosage: 8 daily for 5 days
     Route: 065
  8. SANDOZ BISOPROLOL [Concomitant]
     Route: 065
  9. BENADRYL [Concomitant]
     Indication: PREMEDICATION
     Route: 042
  10. NOVOLIN NPH INSULIN [Concomitant]
     Route: 065
  11. NOVOLIN R INSULIN [Concomitant]
     Route: 065
  12. NOVOLIN TORONTO INSULIN [Concomitant]
     Route: 065

REACTIONS (7)
  - Chest discomfort [Recovered/Resolved]
  - Dyspnoea [Recovered/Resolved]
  - Flushing [Recovered/Resolved]
  - Hypotension [Recovered/Resolved]
  - Rales [Recovered/Resolved]
  - Infusion related reaction [Recovered/Resolved]
  - Albumin globulin ratio decreased [Recovered/Resolved]
